FAERS Safety Report 9303637 (Version 1)
Quarter: 2013Q2

REPORT INFORMATION
  Report Type: Report from Study
  Country: US (occurrence: US)
  Receive Date: 20130522
  Receipt Date: 20130522
  Transmission Date: 20140414
  Serious: Yes (Hospitalization, Other)
  Sender: FDA-Public Use
  Company Number: US-ABBOTT-13P-163-1090309-00

PATIENT
  Age: 55 Year
  Sex: Male

DRUGS (2)
  1. HUMIRA [Suspect]
     Indication: ANKYLOSING SPONDYLITIS
  2. UNKNOWN MEDICATION(S) [Concomitant]
     Indication: PRODUCT USED FOR UNKNOWN INDICATION

REACTIONS (13)
  - Exostosis [Unknown]
  - Spinal column stenosis [Unknown]
  - Dysphagia [Unknown]
  - Arthropathy [Unknown]
  - Abasia [Unknown]
  - Coronary arterial stent insertion [Unknown]
  - Multiple sclerosis [Unknown]
  - Skin cancer [Unknown]
  - Chest pain [Unknown]
  - Dyspnoea [Not Recovered/Not Resolved]
  - Weight increased [Unknown]
  - Systemic lupus erythematosus [Unknown]
  - Multiple sclerosis [Unknown]
